FAERS Safety Report 8499500-7 (Version None)
Quarter: 2012Q3

REPORT INFORMATION
  Report Type: 
  Country: None (occurrence: None)
  Receive Date: 20120710
  Receipt Date: 20120628
  Transmission Date: 20120928
  Serious: Yes (Hospitalization, Other)
  Sender: FDA-Public Use
  Company Number: US-ELI_LILLY_AND_COMPANY-US201011007444

PATIENT
  Sex: Female

DRUGS (6)
  1. FORTEO [Suspect]
     Indication: OSTEOPOROSIS
     Dosage: 20  UG, QD
     Dates: start: 20100726
  2. FORTEO [Suspect]
     Dosage: 20 UG, QD
     Dates: start: 20100726
  3. VITAMIN TAB [Concomitant]
     Dosage: UNK, QD
  4. EXELON [Concomitant]
     Dosage: UNK, QD
  5. MIRTAZAPINE [Concomitant]
     Dosage: UNK, QD
  6. FORTEO [Suspect]
     Dosage: 20 UG, QD
     Dates: start: 20100726

REACTIONS (8)
  - HIP FRACTURE [None]
  - ABASIA [None]
  - OVERDOSE [None]
  - INJECTION SITE PAIN [None]
  - FEMUR FRACTURE [None]
  - CONSTIPATION [None]
  - ASTHENIA [None]
  - DEMENTIA [None]
